FAERS Safety Report 8061087-0 (Version None)
Quarter: 2012Q1

REPORT INFORMATION
  Report Type: 
  Country: None (occurrence: None)
  Receive Date: 20120120
  Receipt Date: 20110404
  Transmission Date: 20120608
  Serious: No
  Sender: FDA-Public Use
  Company Number: US-ALLERGAN-1104669US

PATIENT
  Age: 72 Year
  Sex: Male

DRUGS (2)
  1. RESTASIS [Suspect]
     Indication: DRY EYE
     Dosage: 1 GTT, BID
     Route: 047
     Dates: start: 20110215, end: 20110323
  2. SOOTHE [Concomitant]
     Indication: DRY EYE
     Dosage: UNK

REACTIONS (1)
  - HALLUCINATION [None]
